FAERS Safety Report 20037149 (Version 1)
Quarter: 2021Q4

REPORT INFORMATION
  Report Type: Spontaneous
  Country: DE (occurrence: DE)
  Receive Date: 20211105
  Receipt Date: 20211105
  Transmission Date: 20220304
  Serious: Yes (Other)
  Sender: FDA-Public Use
  Company Number: DE-009507513-2111DEU001457

PATIENT
  Age: 57 Year

DRUGS (4)
  1. KEYTRUDA [Suspect]
     Active Substance: PEMBROLIZUMAB
     Indication: Non-small cell lung cancer
     Dosage: 200 MG ABSOLUTE, Q22, 4 CYCLES
     Dates: start: 20190522, end: 20190805
  2. KEYTRUDA [Suspect]
     Active Substance: PEMBROLIZUMAB
     Dosage: 200 MG ABSOLUTE Q22, 9 CYCLES
     Dates: start: 20190820
  3. KEYTRUDA [Suspect]
     Active Substance: PEMBROLIZUMAB
     Dosage: 400 MILLIGRAM, EVERY 6 WEEKS
     Dates: start: 20191010
  4. KEYTRUDA [Suspect]
     Active Substance: PEMBROLIZUMAB
     Dosage: 400 MILLIGRAM, EVERY 6 WEEKS
     Dates: start: 20200312, end: 20200413

REACTIONS (8)
  - Atypical pneumonia [Unknown]
  - Pulmonary fibrosis [Unknown]
  - Lung opacity [Unknown]
  - Lymphadenopathy [Unknown]
  - Bronchial polyp [Unknown]
  - Lung infiltration [Unknown]
  - Inappropriate schedule of product administration [Unknown]
  - Inappropriate schedule of product administration [Unknown]

NARRATIVE: CASE EVENT DATE: 20190522
